FAERS Safety Report 4660852-7 (Version None)
Quarter: 2005Q2

REPORT INFORMATION
  Report Type: 
  Country: None (occurrence: None)
  Receive Date: 20050425
  Receipt Date: 20050131
  Transmission Date: 20051028
  Serious: Yes (Other)
  Sender: FDA-Public Use
  Company Number: 16443

PATIENT
  Age: 77 Year
  Sex: Female
  Weight: 85.2762 kg

DRUGS (15)
  1. CARBOPLATIN [Suspect]
     Indication: LUNG NEOPLASM MALIGNANT
     Dosage: 135MG WEEKLY, IV
     Route: 042
  2. TAXOL [Concomitant]
  3. ZOFRAN [Concomitant]
  4. DEXAMETHASONE [Concomitant]
  5. CIMETIDINE [Concomitant]
  6. BENADRYL [Concomitant]
  7. COMPAZINE [Concomitant]
  8. DEXAMETHASONE [Concomitant]
  9. SPIRIVA [Concomitant]
  10. ALBUTEROL [Concomitant]
  11. LIPITOR [Concomitant]
  12. ATENOLOL [Concomitant]
  13. DIABETA [Concomitant]
  14. GUIAFENESIN [Concomitant]
  15. CAPTOPRIL [Concomitant]

REACTIONS (2)
  - CHEST PAIN [None]
  - PAIN [None]
